FAERS Safety Report 4377245-2 (Version None)
Quarter: 2004Q2

REPORT INFORMATION
  Report Type: 
  Country: None (occurrence: None)
  Receive Date: 20040609
  Receipt Date: 20040318
  Transmission Date: 20050107
  Serious: No
  Sender: FDA-Public Use
  Company Number: 2004205414US

PATIENT
  Age: 31 Year
  Sex: Female

DRUGS (2)
  1. BEXTRA [Suspect]
     Indication: DYSMENORRHOEA
     Dosage: 20 MG, BID
     Dates: start: 20040311, end: 20040312
  2. OVCON-35 [Concomitant]

REACTIONS (2)
  - AGGRESSION [None]
  - HEADACHE [None]
